FAERS Safety Report 6523930-3 (Version None)
Quarter: 2009Q4

REPORT INFORMATION
  Report Type: 
  Country: None (occurrence: None)
  Receive Date: 20091231
  Receipt Date: 20091220
  Transmission Date: 20100525
  Serious: Yes (Death, Hospitalization, Other)
  Sender: FDA-Public Use
  Company Number: US-PFIZER INC-2009304571

PATIENT
  Sex: Male
  Weight: 57 kg

DRUGS (13)
  1. CP-751,871 [Suspect]
     Indication: NON-SMALL CELL LUNG CANCER
     Dosage: 1230 MG, CYCLIC, EVERY 3 WEEKS
     Route: 042
     Dates: start: 20091014, end: 20091104
  2. SUNITINIB MALATE [Suspect]
     Indication: NON-SMALL CELL LUNG CANCER
     Dosage: 25 MG, CYCLIC, SCHEDULE 2/1
     Route: 048
     Dates: start: 20091014, end: 20091117
  3. MORPHINE SULFATE [Concomitant]
     Indication: PAIN
     Dosage: UNK
     Dates: start: 20081001
  4. FENTANYL [Concomitant]
     Indication: PAIN
     Dosage: UNK
     Dates: start: 20091008
  5. VICODIN [Concomitant]
     Indication: PAIN
     Dosage: UNK
     Dates: start: 20081001
  6. ZOMETA [Concomitant]
     Indication: METASTASES TO BONE
     Dosage: UNK
  7. ZOLPIDEM [Concomitant]
     Indication: INSOMNIA
     Dosage: UNK
     Dates: start: 20090701
  8. TESSALON [Concomitant]
     Indication: COUGH
     Dosage: UNK
     Dates: start: 20090801
  9. VENTOLIN [Concomitant]
     Indication: DYSPNOEA
     Dosage: UNK
     Dates: start: 20081001
  10. VENTOLIN [Concomitant]
     Indication: COUGH
  11. ALBUTEROL [Concomitant]
     Indication: DYSPNOEA
     Dosage: UNK
     Dates: start: 20090801
  12. ALBUTEROL [Concomitant]
     Indication: COUGH
  13. NICOTIANA TABACUM [Concomitant]
     Indication: ANHEDONIA
     Dosage: UNK
     Dates: start: 19670101

REACTIONS (9)
  - ACUTE RESPIRATORY FAILURE [None]
  - BLOOD ALBUMIN DECREASED [None]
  - FATIGUE [None]
  - GENERAL PHYSICAL HEALTH DETERIORATION [None]
  - HAEMOGLOBIN DECREASED [None]
  - HYPOPHAGIA [None]
  - MALIGNANT NEOPLASM PROGRESSION [None]
  - NON-SMALL CELL LUNG CANCER [None]
  - PAIN [None]
